FAERS Safety Report 6832251-0 (Version None)
Quarter: 2010Q3

REPORT INFORMATION
  Report Type: 
  Country: None (occurrence: None)
  Receive Date: 20100712
  Receipt Date: 20100702
  Transmission Date: 20110219
  Serious: Yes (Other)
  Sender: FDA-Public Use
  Company Number: US-SANOFI-AVENTIS-2010SA039918

PATIENT
  Age: 54 Year
  Sex: Female
  Weight: 110 kg

DRUGS (1)
  1. LANTUS [Suspect]
     Dosage: 20 UNITS QAM AND 60UNITS QPM
     Route: 058

REACTIONS (9)
  - BACTERIAL INFECTION [None]
  - CHROMATURIA [None]
  - FEELING HOT [None]
  - HAEMORRHAGE [None]
  - HYPERHIDROSIS [None]
  - RASH PRURITIC [None]
  - SKIN WRINKLING [None]
  - UNEVALUABLE EVENT [None]
  - WEIGHT DECREASED [None]
